FAERS Safety Report 9363150 (Version 1)
Quarter: 2013Q2

REPORT INFORMATION
  Report Type: Spontaneous
  Country: US (occurrence: US)
  Receive Date: 20130624
  Receipt Date: 20130624
  Transmission Date: 20140414
  Serious: No
  Sender: FDA-Public Use
  Company Number: US-PFIZER INC-2013186155

PATIENT
  Age: 88 Year
  Sex: Male
  Weight: 83.45 kg

DRUGS (1)
  1. ADVIL PM [Suspect]
     Indication: SLEEP DISORDER
     Dosage: 76 MG (TWO TABLETS OF 38MG), DAILY
     Route: 048
     Dates: start: 2013

REACTIONS (3)
  - Off label use [Unknown]
  - Intentional drug misuse [Unknown]
  - Fatigue [Not Recovered/Not Resolved]
